FAERS Safety Report 7987503-8 (Version None)
Quarter: 2011Q4

REPORT INFORMATION
  Report Type: 
  Country: None (occurrence: None)
  Receive Date: 20111216
  Receipt Date: 20111213
  Transmission Date: 20120403
  Serious: Yes (Other)
  Sender: FDA-Public Use
  Company Number: PHEH2011US008695

PATIENT
  Sex: Female

DRUGS (7)
  1. RECLAST [Suspect]
     Dosage: UNK
     Route: 042
     Dates: start: 20100101
  2. RECLAST [Suspect]
     Dosage: UNK
     Route: 042
     Dates: start: 20091201
  3. LOVASTATIN [Concomitant]
  4. CALCIUM [Concomitant]
  5. AMLODIPINE [Concomitant]
  6. VITAMIN D [Concomitant]
  7. MULTIVITAMIN [Concomitant]

REACTIONS (1)
  - BLOOD DISORDER [None]
